FAERS Safety Report 10160430 (Version 1)
Quarter: 2014Q2

REPORT INFORMATION
  Report Type: Spontaneous
  Country: US (occurrence: US)
  Receive Date: 20140508
  Receipt Date: 20140508
  Transmission Date: 20141212
  Serious: No
  Sender: FDA-Public Use
  Company Number: US-009507513-2012SP036860

PATIENT
  Age: 22 Year
  Sex: Male
  Weight: 99.79 kg

DRUGS (3)
  1. CLARITIN [Suspect]
     Indication: HYPERSENSITIVITY
     Dosage: 10 MG, QD
     Route: 048
  2. CLARITIN [Suspect]
     Dosage: 10 MG, QPM
     Route: 048
     Dates: start: 20120626
  3. CLARITIN [Suspect]
     Dosage: 10 MG, QAM
     Route: 048
     Dates: start: 20120617

REACTIONS (1)
  - Overdose [Not Recovered/Not Resolved]
